FAERS Safety Report 12398466 (Version 1)
Quarter: 2016Q2

REPORT INFORMATION
  Report Type: Spontaneous
  Country: US (occurrence: US)
  Receive Date: 20160524
  Receipt Date: 20160524
  Transmission Date: 20160815
  Serious: No
  Sender: FDA-Public Use
  Company Number: US-ACTELION-A-NJ2016-134795

PATIENT
  Age: 81 Year
  Sex: Male
  Weight: 87.53 kg

DRUGS (3)
  1. ADCIRCA [Suspect]
     Active Substance: TADALAFIL
     Indication: PRODUCT USED FOR UNKNOWN INDICATION
     Route: 065
  2. OPSUMIT [Suspect]
     Active Substance: MACITENTAN
     Indication: PULMONARY ARTERIAL HYPERTENSION
     Dosage: 10 MG, QD
     Route: 048
     Dates: start: 20160316
  3. TYVASO [Suspect]
     Active Substance: TREPROSTINIL
     Indication: PULMONARY ARTERIAL HYPERTENSION
     Dosage: UNK MCG, QID
     Route: 055
     Dates: start: 20150914

REACTIONS (5)
  - Adverse drug reaction [Unknown]
  - Condition aggravated [Unknown]
  - Flushing [Unknown]
  - Product use issue [Unknown]
  - Rash macular [Unknown]

NARRATIVE: CASE EVENT DATE: 201603
